FAERS Safety Report 12853763 (Version 5)
Quarter: 2021Q2

REPORT INFORMATION
  Report Type: Spontaneous
  Country: DE (occurrence: DE)
  Receive Date: 20161017
  Receipt Date: 20210617
  Transmission Date: 20210716
  Serious: Yes (Hospitalization)
  Sender: FDA-Public Use
  Company Number: DE-BIOGEN-2016BI00304769

PATIENT
  Age: 55 Year
  Sex: Female

DRUGS (3)
  1. TECFIDERA [Suspect]
     Active Substance: DIMETHYL FUMARATE
     Dosage: STARTING DOSE
     Route: 048
     Dates: start: 201404, end: 201404
  2. TECFIDERA [Suspect]
     Active Substance: DIMETHYL FUMARATE
     Route: 065
  3. TECFIDERA [Suspect]
     Active Substance: DIMETHYL FUMARATE
     Indication: MULTIPLE SCLEROSIS
     Dosage: MAINTENANCE DOSE
     Route: 048
     Dates: start: 201404

REACTIONS (11)
  - Faecaloma [Unknown]
  - Weight decreased [Recovered/Resolved]
  - Gastric ulcer [Recovered/Resolved]
  - Duodenitis [Unknown]
  - Large intestinal stenosis [Unknown]
  - Diarrhoea [Unknown]
  - Colitis [Unknown]
  - Gastroduodenal ulcer [Recovered/Resolved]
  - Constipation [Unknown]
  - Large intestine polyp [Unknown]
  - Reactive gastropathy [Unknown]

NARRATIVE: CASE EVENT DATE: 201605
